FAERS Safety Report 16233708 (Version 1)
Quarter: 2019Q2

REPORT INFORMATION
  Report Type: Spontaneous
  Country: US (occurrence: US)
  Receive Date: 20190423
  Receipt Date: 20190423
  Transmission Date: 20190711
  Serious: Yes (Hospitalization)
  Sender: FDA-Public Use
  Company Number: None

PATIENT
  Sex: Male

DRUGS (5)
  1. LISINOPRIL TAB 10MG [Concomitant]
  2. XELJANZ [Suspect]
     Active Substance: TOFACITINIB CITRATE
     Indication: GASTROINTESTINAL INFLAMMATION
     Route: 048
     Dates: start: 20190302
  3. PREDNISONE TAB 10MG [Concomitant]
     Active Substance: PREDNISONE
  4. TRAZODONE TAB 100MG [Concomitant]
  5. FENOFIBRATE TAB 160MG [Concomitant]

REACTIONS (2)
  - Condition aggravated [None]
  - Drug ineffective [None]
